FAERS Safety Report 7256315-5 (Version None)
Quarter: 2011Q1

REPORT INFORMATION
  Report Type: 
  Country: None (occurrence: None)
  Receive Date: 20110129
  Receipt Date: 20100708
  Transmission Date: 20110831
  Serious: No
  Sender: FDA-Public Use
  Company Number: US-ABBOTT-10P-163-0639480-00

PATIENT
  Sex: Male
  Weight: 81.72 kg

DRUGS (7)
  1. HUMIRA [Suspect]
     Dates: start: 20100414, end: 20100701
  2. ATENOLOL [Concomitant]
     Indication: HYPERTENSION
  3. HUMIRA [Suspect]
     Indication: RHEUMATOID ARTHRITIS
     Dates: start: 20100331, end: 20100331
  4. HUMIRA [Suspect]
     Route: 058
     Dates: start: 20100701
  5. AMLODIPINE [Concomitant]
     Indication: HYPERTENSION
  6. SIMVASTATIN [Concomitant]
     Indication: PRODUCT USED FOR UNKNOWN INDICATION
  7. MOTRIN [Concomitant]
     Indication: BACK PAIN

REACTIONS (4)
  - ABDOMINAL PAIN UPPER [None]
  - DRUG EFFECT DECREASED [None]
  - VOMITING [None]
  - DRUG INEFFECTIVE [None]
